FAERS Safety Report 5515751-5 (Version None)
Quarter: 2007Q4

REPORT INFORMATION
  Report Type: 
  Country: None (occurrence: None)
  Receive Date: 20071114
  Receipt Date: 20071106
  Transmission Date: 20080405
  Serious: Yes (Other)
  Sender: FDA-Public Use
  Company Number: PHFR2007GB03255

PATIENT
  Age: 10 Year
  Weight: 40 kg

DRUGS (6)
  1. VOLTAREN [Suspect]
     Indication: TONSILLECTOMY
     Dosage: 50MG
     Route: 051
  2. PROPOFOL [Concomitant]
     Indication: ANAESTHESIA
     Dosage: 160MG
     Route: 042
     Dates: start: 20071023, end: 20071023
  3. ONDANSETRON [Concomitant]
     Indication: ANAESTHESIA
     Dosage: 2MG
     Route: 042
  4. ATROPINE [Concomitant]
     Indication: ANAESTHESIA
     Dosage: 15MG
     Route: 042
     Dates: start: 20071023, end: 20071023
  5. FENTANYL [Concomitant]
     Indication: ANAESTHESIA
     Dosage: 50MG
     Route: 042
     Dates: start: 20071023, end: 20071023
  6. MORPHINE [Concomitant]
     Indication: ANAESTHESIA
     Dosage: 3MG
     Route: 042
     Dates: start: 20071023, end: 20071023

REACTIONS (4)
  - PALLOR [None]
  - STRIDOR [None]
  - URTICARIA [None]
  - WHEEZING [None]
